FAERS Safety Report 14671159 (Version 1)
Quarter: 2018Q1

REPORT INFORMATION
  Report Type: Spontaneous
  Country: US (occurrence: US)
  Receive Date: 20180322
  Receipt Date: 20180322
  Transmission Date: 20180509
  Serious: Yes (Hospitalization)
  Sender: FDA-Public Use
  Company Number: None

PATIENT
  Age: 65 Year
  Sex: Male
  Weight: 83.46 kg

DRUGS (18)
  1. METHOTREXATE. [Suspect]
     Active Substance: METHOTREXATE
     Dates: end: 20180306
  2. VINCRISTINE SULFATE. [Suspect]
     Active Substance: VINCRISTINE SULFATE
     Dates: end: 20180112
  3. SODIUM CHLORIDE FLUSH [Concomitant]
     Active Substance: SODIUM CHLORIDE
  4. ACYCLOVIR. [Concomitant]
     Active Substance: ACYCLOVIR
  5. FLUCONAZOLE. [Concomitant]
     Active Substance: FLUCONAZOLE
  6. DAUNORUBICIN [Suspect]
     Active Substance: DAUNORUBICIN
     Dates: end: 20180112
  7. DEXAMETHASONE. [Suspect]
     Active Substance: DEXAMETHASONE
     Dates: end: 20180111
  8. SACUBITRIL-VALSARTAN [Concomitant]
     Active Substance: SACUBITRIL\VALSARTAN
  9. DOCUSATE [Concomitant]
     Active Substance: DOCUSATE
  10. OXYCODONE [Concomitant]
     Active Substance: OXYCODONE
  11. POLYETHYLENE GLUCOL PACK [Concomitant]
  12. SENNA [Concomitant]
     Active Substance: SENNA LEAF\SENNOSIDES\SENNOSIDES A AND B
  13. CYTARABINE. [Suspect]
     Active Substance: CYTARABINE
     Dates: end: 20180316
  14. MERCAPTOPURINE. [Suspect]
     Active Substance: MERCAPTOPURINE
     Dates: end: 20180316
  15. PANTOPRAZOLE [Concomitant]
     Active Substance: PANTOPRAZOLE
  16. CYCLOPHOSPHAMIDE. [Suspect]
     Active Substance: CYCLOPHOSPHAMIDE
     Dates: end: 20180227
  17. METOPROLOL. [Concomitant]
     Active Substance: METOPROLOL
  18. PROCHLORPERAZINE. [Concomitant]
     Active Substance: PROCHLORPERAZINE

REACTIONS (1)
  - Febrile neutropenia [None]

NARRATIVE: CASE EVENT DATE: 20180317
